FAERS Safety Report 5848498-6 (Version None)
Quarter: 2008Q3

REPORT INFORMATION
  Report Type: 
  Country: None (occurrence: None)
  Receive Date: 20080818
  Receipt Date: 20080724
  Transmission Date: 20090109
  Serious: No
  Sender: FDA-Public Use
  Company Number: US-BAYER-200810954BCC

PATIENT
  Age: 76 Year
  Sex: Male
  Weight: 91 kg

DRUGS (4)
  1. ALEVE [Suspect]
     Indication: MUSCULOSKELETAL PAIN
     Dosage: TOTAL DAILY DOSE: 440 MG  UNIT DOSE: 220 MG
     Route: 048
     Dates: start: 20080218
  2. ASPIRIN [Suspect]
     Indication: CARDIOVASCULAR EVENT PROPHYLAXIS
     Dosage: TOTAL DAILY DOSE: 81 MG  UNIT DOSE: 81 MG
     Route: 048
     Dates: start: 20040101
  3. LOTREL [Concomitant]
  4. GLAUCOMA EYE DROPS [Concomitant]

REACTIONS (3)
  - FATIGUE [None]
  - HYPERSOMNIA [None]
  - MUSCULOSKELETAL PAIN [None]
